FAERS Safety Report 6369831-5 (Version None)
Quarter: 2009Q3

REPORT INFORMATION
  Report Type: 
  Country: None (occurrence: None)
  Receive Date: 20090923
  Receipt Date: 20090922
  Transmission Date: 20100115
  Serious: Yes (Other)
  Sender: FDA-Public Use
  Company Number: US-TEVA-209904USA

PATIENT
  Sex: Male

DRUGS (3)
  1. METOCLOPRAMIDE [Suspect]
     Indication: VOMITING
     Dosage: 10 MG/2 ML OVER 2 MINUTES
     Route: 042
     Dates: start: 20090909, end: 20090909
  2. FLUOXETINE [Concomitant]
  3. FAMOTIDINE [Concomitant]

REACTIONS (3)
  - ANOXIC ENCEPHALOPATHY [None]
  - CARDIAC ARREST [None]
  - CONVULSION [None]
